FAERS Safety Report 7116808-8 (Version None)
Quarter: 2010Q4

REPORT INFORMATION
  Report Type: 
  Country: None (occurrence: None)
  Receive Date: 20101122
  Receipt Date: 20101115
  Transmission Date: 20110411
  Serious: Yes (Hospitalization)
  Sender: FDA-Public Use
  Company Number: US-JNJFOC-20101105499

PATIENT
  Sex: Male
  Weight: 117.3 kg

DRUGS (10)
  1. BLINDED; INFLIXIMAB, RECOMBINANT [Suspect]
     Indication: HEPATITIS C
     Route: 042
  2. PLACEBO [Suspect]
     Indication: HEPATITIS C
     Route: 042
  3. PEG-INTRON [Suspect]
     Indication: HEPATITIS C
     Dosage: 180 MCG
     Route: 058
  4. PEG-INTRON [Suspect]
     Dosage: 120 MCG
     Route: 058
  5. REBETOL [Suspect]
     Indication: HEPATITIS C
     Route: 048
  6. AMBIEN [Concomitant]
     Dosage: 1 TABLET EVERY OTHER NIGHT AAT BEDTIME
     Route: 048
  7. CITALOPRAM HYDROBROMIDE [Concomitant]
     Dosage: TAKE 1 PILL EVERY OTHER NIGHT FOR 6 DAYS; ON THE SEVENTH DAY START TAKING WHOLE PILL
     Route: 048
  8. MOTRIN IB [Concomitant]
     Dosage: TAKE 600 MG EVERY 6-8 HOURS AS NEEDED
     Route: 048
  9. MULTI-VITAMINS [Concomitant]
  10. K-DUR [Concomitant]

REACTIONS (7)
  - DERMATITIS EXFOLIATIVE [None]
  - HAEMATOCRIT DECREASED [None]
  - HAEMOGLOBIN DECREASED [None]
  - NEUTROPHIL COUNT DECREASED [None]
  - SLEEP DISORDER [None]
  - STAPHYLOCOCCAL INFECTION [None]
  - WHITE BLOOD CELL COUNT DECREASED [None]
